FAERS Safety Report 13000581 (Version 1)
Quarter: 2016Q4

REPORT INFORMATION
  Report Type: Report from Study
  Country: US (occurrence: US)
  Receive Date: 20161206
  Receipt Date: 20161206
  Transmission Date: 20170207
  Serious: No
  Sender: FDA-Public Use
  Company Number: US-AMGEN-USASL2016169656

PATIENT
  Age: 15 Year
  Sex: Female

DRUGS (1)
  1. ENBREL [Suspect]
     Active Substance: ETANERCEPT
     Indication: JUVENILE IDIOPATHIC ARTHRITIS
     Dosage: 50 MG, QWK
     Route: 065
     Dates: start: 20161105

REACTIONS (8)
  - Vomiting [Recovered/Resolved]
  - Cough [Not Recovered/Not Resolved]
  - Limb mass [Unknown]
  - Injection site rash [Unknown]
  - Injection site bruising [Unknown]
  - Injection site erythema [Unknown]
  - Viral infection [Not Recovered/Not Resolved]
  - Injection site papule [Unknown]

NARRATIVE: CASE EVENT DATE: 201611
